FAERS Safety Report 20781852 (Version 1)
Quarter: 2022Q2

REPORT INFORMATION
  Report Type: Spontaneous
  Country: CN (occurrence: CN)
  Receive Date: 20220504
  Receipt Date: 20220504
  Transmission Date: 20220721
  Serious: Yes (Hospitalization)
  Sender: FDA-Public Use
  Company Number: CN-STRIDES ARCOLAB LIMITED-2022SP004870

PATIENT
  Age: 72 Year
  Sex: Female

DRUGS (8)
  1. ENTECAVIR [Interacting]
     Active Substance: ENTECAVIR
     Indication: Acute hepatitis B
     Dosage: 0.5 MILLIGRAM, PER DAY
     Route: 065
     Dates: start: 2019
  2. ROSUVASTATIN [Interacting]
     Active Substance: ROSUVASTATIN
     Indication: Cardiovascular event prophylaxis
     Dosage: UNK
     Route: 065
     Dates: start: 2019
  3. ASPIRIN [Concomitant]
     Active Substance: ASPIRIN
     Indication: Cardiovascular event prophylaxis
     Dosage: UNK
     Route: 065
     Dates: start: 2019
  4. CLOPIDOGREL [Concomitant]
     Active Substance: CLOPIDOGREL BISULFATE
     Indication: Cardiovascular event prophylaxis
     Dosage: UNK
     Route: 065
     Dates: start: 2019
  5. BENAZEPRIL [Concomitant]
     Active Substance: BENAZEPRIL HYDROCHLORIDE
     Indication: Cardiovascular event prophylaxis
     Dosage: UNK
     Route: 065
     Dates: start: 2019
  6. METOPROLOL [Concomitant]
     Active Substance: METOPROLOL
     Indication: Cardiovascular event prophylaxis
     Dosage: UNK
     Route: 065
     Dates: start: 2019
  7. FELODIPINE [Concomitant]
     Active Substance: FELODIPINE
     Indication: Cardiovascular event prophylaxis
     Dosage: UNK
     Route: 065
     Dates: start: 2019
  8. ATORVASTATIN [Concomitant]
     Active Substance: ATORVASTATIN
     Indication: Coronary artery disease
     Dosage: UNK
     Route: 065
     Dates: start: 2019

REACTIONS (2)
  - Drug interaction [Recovered/Resolved]
  - Rhabdomyolysis [Recovered/Resolved]

NARRATIVE: CASE EVENT DATE: 20190101
